FAERS Safety Report 12788467 (Version 1)
Quarter: 2016Q3

REPORT INFORMATION
  Report Type: Report from Study
  Country: PL (occurrence: PL)
  Receive Date: 20160928
  Receipt Date: 20160928
  Transmission Date: 20161109
  Serious: Yes (Hospitalization)
  Sender: FDA-Public Use
  Company Number: PL-UCBSA-2016036398

PATIENT
  Age: 35 Year
  Sex: Male
  Weight: 82 kg

DRUGS (6)
  1. SULFASALAZINE. [Concomitant]
     Active Substance: SULFASALAZINE
     Indication: SPONDYLOARTHROPATHY
     Dosage: 1000 MG, 2X/DAY (BID)
     Route: 048
     Dates: start: 20150924
  2. KALIPOZ-PROLONGATUM [Concomitant]
     Indication: HYPOKALAEMIA
     Dosage: ONCE DAILY (QD), 1 TABLET
     Route: 048
     Dates: start: 20150925
  3. MOVALIS [Concomitant]
     Active Substance: MELOXICAM
     Indication: SPONDYLOARTHROPATHY
     Dosage: 15 MG, ONCE DAILY (QD)
     Route: 048
     Dates: start: 20151010
  4. SIRDALUD [Concomitant]
     Active Substance: TIZANIDINE
     Indication: SPONDYLOARTHROPATHY
     Dosage: 4 MG, 2X/DAY (BID)
     Route: 048
     Dates: start: 20151001
  5. ACIDUM FOLICUM [Concomitant]
     Active Substance: FOLIC ACID
     Indication: PROPHYLAXIS
     Dosage: 15 MG, ONCE DAILY (QD)
     Route: 048
     Dates: start: 20150924
  6. CERTOLIZUMAB PEGOL [Suspect]
     Active Substance: CERTOLIZUMAB PEGOL
     Indication: AXIAL SPONDYLOARTHRITIS
     Dosage: UNK
     Dates: end: 20160921

REACTIONS (1)
  - Appendicitis [Recovered/Resolved]

NARRATIVE: CASE EVENT DATE: 20160915
